FAERS Safety Report 22277829 (Version 1)
Quarter: 2023Q2

REPORT INFORMATION
  Report Type: Spontaneous
  Country: AU (occurrence: None)
  Receive Date: 20230503
  Receipt Date: 20230503
  Transmission Date: 20230722
  Serious: Yes (Other)
  Sender: FDA-Public Use
  Company Number: 2023A099793

PATIENT
  Age: 45 Year
  Sex: Male

DRUGS (23)
  1. ESOMEPRAZOLE [Suspect]
     Active Substance: ESOMEPRAZOLE
  2. PROPRANOLOL HYDROCHLORIDE [Suspect]
     Active Substance: PROPRANOLOL HYDROCHLORIDE
  3. ATORVASTATIN [Suspect]
     Active Substance: ATORVASTATIN
  4. ATROPINE SULFATE [Suspect]
     Active Substance: ATROPINE SULFATE
  5. CLOZAPINE [Suspect]
     Active Substance: CLOZAPINE
  6. DOCUSATE SODIUM\SENNOSIDES A AND B [Suspect]
     Active Substance: DOCUSATE SODIUM\SENNOSIDES A AND B
  7. LEVOTHYROXINE [Suspect]
     Active Substance: LEVOTHYROXINE
  8. ALBUTEROL [Suspect]
     Active Substance: ALBUTEROL
  9. SUMATRIPTAN [Suspect]
     Active Substance: SUMATRIPTAN
  10. ALPRAZOLAM [Suspect]
     Active Substance: ALPRAZOLAM
  11. AMISULPRIDE [Suspect]
     Active Substance: AMISULPRIDE
  12. CHROMIUM PICOLINATE [Suspect]
     Active Substance: CHROMIUM PICOLINATE
  13. CHOLECALCIFEROL [Suspect]
     Active Substance: CHOLECALCIFEROL
  14. ESCITALOPRAM [Suspect]
     Active Substance: ESCITALOPRAM OXALATE
  15. EZETIMIBE [Suspect]
     Active Substance: EZETIMIBE
  16. LITHIUM [Suspect]
     Active Substance: LITHIUM
  17. LORAZEPAM [Suspect]
     Active Substance: LORAZEPAM
  18. METFORMIN HYDROCHLORIDE [Suspect]
     Active Substance: METFORMIN HYDROCHLORIDE
  19. OXYCODONE [Suspect]
     Active Substance: OXYCODONE
  20. ACETAMINOPHEN [Suspect]
     Active Substance: ACETAMINOPHEN
  21. PREGABALIN [Suspect]
     Active Substance: PREGABALIN
  22. VALPROATE SODIUM [Suspect]
     Active Substance: VALPROATE SODIUM
  23. TOPIRAMATE [Suspect]
     Active Substance: TOPIRAMATE

REACTIONS (6)
  - Acute kidney injury [Unknown]
  - Metabolic acidosis [Unknown]
  - Neuroleptic malignant syndrome [Unknown]
  - Rhabdomyolysis [Unknown]
  - Iron deficiency [Unknown]
  - Skin ulcer [Unknown]
